FAERS Safety Report 10555467 (Version 2)
Quarter: 2014Q4

REPORT INFORMATION
  Report Type: Report from Study
  Country: US (occurrence: US)
  Receive Date: 20141030
  Receipt Date: 20141118
  Transmission Date: 20150529
  Serious: Yes (Disabling, Other)
  Sender: FDA-Public Use
  Company Number: US-SA-2014SA146038

PATIENT
  Age: 63 Year
  Sex: Female
  Weight: 111 kg

DRUGS (2)
  1. LANTUS [Suspect]
     Active Substance: INSULIN GLARGINE
     Indication: DIABETES MELLITUS
     Dosage: 50 U MORNING, 15 AT NIGHT
     Route: 065
  2. HUMALOG [Concomitant]
     Active Substance: INSULIN LISPRO

REACTIONS (4)
  - Dialysis [Unknown]
  - Diabetes mellitus inadequate control [Not Recovered/Not Resolved]
  - Drug administration error [Unknown]
  - Cardiac disorder [Not Recovered/Not Resolved]
